FAERS Safety Report 26217813 (Version 1)
Quarter: 2025Q4

REPORT INFORMATION
  Report Type: Spontaneous
  Country: EU (occurrence: EU)
  Receive Date: 20251231
  Receipt Date: 20251231
  Transmission Date: 20260117
  Serious: Yes (Other)
  Sender: MERCK SHARP & DOHME LLC
  Company Number: EU-009507513-2364780

PATIENT
  Age: 70 Year
  Sex: Male

DRUGS (2)
  1. JANUMET [Suspect]
     Active Substance: METFORMIN HYDROCHLORIDE\SITAGLIPTIN PHOSPHATE
     Dosage: ONE TABLET IN THE MORNING AND ONE TABLET IN THE EVENING
     Route: 048
  2. LANREOTIDE ACETATE [Concomitant]
     Active Substance: LANREOTIDE ACETATE
     Indication: Pituitary tumour benign

REACTIONS (6)
  - Pituitary tumour benign [Unknown]
  - Dry mouth [Unknown]
  - Hypoglycaemia [Unknown]
  - Middle insomnia [Unknown]
  - Hypertension [Unknown]
  - Cardiac disorder [Unknown]

NARRATIVE: CASE EVENT DATE: 20250101
